FAERS Safety Report 7898890-3 (Version None)
Quarter: 2011Q4

REPORT INFORMATION
  Report Type: 
  Country: None (occurrence: None)
  Receive Date: 20111107
  Receipt Date: 20111025
  Transmission Date: 20120403
  Serious: Yes (Hospitalization)
  Sender: FDA-Public Use
  Company Number: US-MYLANLABS-2011S1022485

PATIENT
  Age: 58 Year
  Sex: Female

DRUGS (4)
  1. DEXTROSE [Concomitant]
     Dosage: TOTAL DOSE ACCORDING TO TABLE: 587G
     Route: 065
  2. VERAPAMIL [Suspect]
     Indication: OVERDOSE
     Route: 048
  3. INSULIN [Suspect]
     Dosage: 82-84 IU/H
     Route: 041
  4. INSULIN [Suspect]
     Indication: CARDIOGENIC SHOCK
     Route: 040

REACTIONS (5)
  - CARDIOGENIC SHOCK [None]
  - HYPOKALAEMIA [None]
  - OVERDOSE [None]
  - HYPOTENSION [None]
  - HYPOGLYCAEMIA [None]
